FAERS Safety Report 11825627 (Version 1)
Quarter: 2015Q4

REPORT INFORMATION
  Report Type: Spontaneous
  Country: US (occurrence: None)
  Receive Date: 20151210
  Receipt Date: 20151210
  Transmission Date: 20160305
  Serious: Yes (Other)
  Sender: FDA-Public Use
  Company Number: None

PATIENT
  Age: 63 Year
  Sex: Female
  Weight: 43.5 kg

DRUGS (1)
  1. FERAHEME [Suspect]
     Active Substance: FERUMOXYTOL NON-STOICHIOMETRIC MAGNETITE
     Route: 042
     Dates: start: 20151130, end: 20151130

REACTIONS (7)
  - Malaise [None]
  - Dyspnoea [None]
  - Ill-defined disorder [None]
  - Flushing [None]
  - Infusion related reaction [None]
  - Lethargy [None]
  - Nausea [None]

NARRATIVE: CASE EVENT DATE: 20151130
